FAERS Safety Report 4768254-X (Version None)
Quarter: 2005Q3

REPORT INFORMATION
  Report Type: 
  Country: None (occurrence: None)
  Receive Date: 20050913
  Receipt Date: 20050830
  Transmission Date: 20060218
  Serious: Yes (Other)
  Sender: FDA-Public Use
  Company Number: GXKR2005GB01537

PATIENT
  Sex: Female

DRUGS (2)
  1. TRAMADOL (NGX) (TRAMADOL) [Suspect]
     Indication: PAIN
     Dosage: 50 MG, QDS, ORAL
     Route: 048
  2. CITALOPRAM (NGX)(CITALOPRAM) [Suspect]
     Indication: DEPRESSION
     Dosage: ORAL
     Route: 048

REACTIONS (3)
  - BALANCE DISORDER [None]
  - DRUG INTERACTION [None]
  - MEDICATION ERROR [None]
